FAERS Safety Report 14558721 (Version 2)
Quarter: 2018Q1

REPORT INFORMATION
  Report Type: Spontaneous
  Country: BR (occurrence: BR)
  Receive Date: 20180221
  Receipt Date: 20180312
  Transmission Date: 20180509
  Serious: Yes (Other)
  Sender: FDA-Public Use
  Company Number: BR-BIOMARINAP-BR-2018-117177

PATIENT
  Sex: Male
  Weight: 37 kg

DRUGS (2)
  1. ALDURAZYME [Suspect]
     Active Substance: LARONIDASE
     Indication: MUCOPOLYSACCHARIDOSIS
     Dosage: 32 DF, QOW
     Route: 041
     Dates: start: 20080501, end: 201710
  2. ALDURAZYME [Suspect]
     Active Substance: LARONIDASE
     Dosage: 32 DF, QOW
     Route: 041
     Dates: start: 201801

REACTIONS (1)
  - Bone disorder [Not Recovered/Not Resolved]

NARRATIVE: CASE EVENT DATE: 2015
